FAERS Safety Report 11188819 (Version 1)
Quarter: 2015Q2

REPORT INFORMATION
  Report Type: Spontaneous
  Country: FR (occurrence: FR)
  Receive Date: 20150615
  Receipt Date: 20150615
  Transmission Date: 20150821
  Serious: Yes (Hospitalization)
  Sender: FDA-Public Use
  Company Number: FR-ACCORD-031418

PATIENT
  Age: 43 Year
  Sex: Male

DRUGS (5)
  1. METOCLOPRAMIDE RENAUDIN [Concomitant]
     Active Substance: METOCLOPRAMIDE
     Indication: PREMEDICATION
     Route: 042
     Dates: start: 20150216
  2. CISPLATIN ACCORD [Concomitant]
     Active Substance: CISPLATIN
     Indication: LUNG CANCER METASTATIC
     Route: 042
     Dates: start: 20150216
  3. ONDANSETRON ACCORD [Concomitant]
     Active Substance: ONDANSETRON
     Indication: PREMEDICATION
     Route: 042
     Dates: start: 20150216
  4. DOCETAXEL ACCORD [Suspect]
     Active Substance: DOCETAXEL
     Indication: LUNG CANCER METASTATIC
     Dosage: STRENGTH: 80 MG/4ML
     Route: 042
     Dates: start: 20150216
  5. METHYLPREDNISOLONE MYLAN [Concomitant]
     Active Substance: METHYLPREDNISOLONE
     Indication: PREMEDICATION
     Dosage: STRENGTH: 120 MG
     Route: 042
     Dates: start: 20150216

REACTIONS (6)
  - Malaise [Recovered/Resolved]
  - Anxiety [Recovered/Resolved]
  - Vomiting [Recovered/Resolved]
  - Palpitations [Unknown]
  - Sinus tachycardia [Recovered/Resolved]
  - Neck pain [Recovered/Resolved]

NARRATIVE: CASE EVENT DATE: 20150216
